FAERS Safety Report 5861297-4 (Version None)
Quarter: 2008Q3

REPORT INFORMATION
  Report Type: 
  Country: None (occurrence: None)
  Receive Date: 20080827
  Receipt Date: 20080410
  Transmission Date: 20090109
  Serious: No
  Sender: FDA-Public Use
  Company Number: US-ABBOTT-08P-163-0446681-00

PATIENT
  Age: 63 Year
  Sex: Male

DRUGS (3)
  1. NIASPAN [Suspect]
     Indication: BLOOD CHOLESTEROL INCREASED
     Route: 048
     Dates: start: 20080201, end: 20080410
  2. NIASPAN [Suspect]
     Dates: start: 20071101, end: 20080101
  3. NIASPAN [Suspect]
     Dates: start: 20080101, end: 20080201

REACTIONS (3)
  - CHAPPED LIPS [None]
  - CHEILITIS [None]
  - LIP SWELLING [None]
